FAERS Safety Report 8530028-1 (Version None)
Quarter: 2012Q3

REPORT INFORMATION
  Report Type: 
  Country: None (occurrence: None)
  Receive Date: 20120723
  Receipt Date: 20120717
  Transmission Date: 20120928
  Serious: Yes (Hospitalization, Other)
  Sender: FDA-Public Use
  Company Number: PHHY2012JP062235

PATIENT
  Age: 69 Year
  Sex: Male

DRUGS (2)
  1. ZOMETA [Suspect]
     Indication: MULTIPLE MYELOMA
     Route: 041
  2. MELPHALAN HYDROCHLORIDE [Concomitant]
     Route: 042

REACTIONS (7)
  - RESPIRATORY TRACT INFECTION [None]
  - PYREXIA [None]
  - PNEUMOCYSTIS JIROVECI PNEUMONIA [None]
  - DYSPNOEA [None]
  - MULTIPLE MYELOMA [None]
  - CONDITION AGGRAVATED [None]
  - ASPERGILLOMA [None]
